APPROVED DRUG PRODUCT: IBUPROFEN
Active Ingredient: IBUPROFEN
Strength: 400MG
Dosage Form/Route: TABLET;ORAL
Application: A072064 | Product #001
Applicant: SANDOZ INC
Approved: Jan 14, 1988 | RLD: No | RS: No | Type: DISCN